FAERS Safety Report 23818708 (Version 1)
Quarter: 2024Q2

REPORT INFORMATION
  Report Type: Report from Study
  Country: GT (occurrence: GT)
  Receive Date: 20240506
  Receipt Date: 20240506
  Transmission Date: 20240716
  Serious: Yes (Hospitalization, Other)
  Sender: FDA-Public Use
  Company Number: GT-Merck Healthcare KGaA-2024023417

PATIENT
  Sex: Female

DRUGS (1)
  1. REBIF [Suspect]
     Active Substance: INTERFERON BETA-1A
     Indication: Multiple sclerosis
     Route: 058
     Dates: start: 20211101

REACTIONS (7)
  - Blood triglycerides increased [Recovered/Resolved]
  - Blood cholesterol increased [Recovered/Resolved]
  - Fat embolism [Recovered/Resolved]
  - Cerebral artery occlusion [Recovered/Resolved]
  - Ischaemic stroke [Recovered/Resolved]
  - Ear disorder [Recovered/Resolved]
  - Inflammation [Recovered/Resolved]
